FAERS Safety Report 8307530-0 (Version None)
Quarter: 2012Q2

REPORT INFORMATION
  Report Type: 
  Country: None (occurrence: None)
  Receive Date: 20120424
  Receipt Date: 20120417
  Transmission Date: 20120825
  Serious: Yes (Life-Threatening)
  Sender: FDA-Public Use
  Company Number: US-ROXANE LABORATORIES, INC.-2012-RO-01072RO

PATIENT
  Age: 2 Year
  Sex: Male

DRUGS (2)
  1. IMMUNOSUPPRESSIVE MEDICATION [Concomitant]
     Indication: LIVER TRANSPLANT
  2. AMLODIPINE [Suspect]
     Indication: SECONDARY HYPERTENSION

REACTIONS (3)
  - ANGIOEDEMA [None]
  - RESPIRATORY DISTRESS [None]
  - UPPER AIRWAY OBSTRUCTION [None]
